FAERS Safety Report 18510792 (Version 1)
Quarter: 2020Q4

REPORT INFORMATION
  Report Type: Report from Study
  Country: US (occurrence: US)
  Receive Date: 20201117
  Receipt Date: 20201117
  Transmission Date: 20210114
  Serious: Yes (Other)
  Sender: FDA-Public Use
  Company Number: US-BAYER-2020-235178

PATIENT
  Sex: Male

DRUGS (4)
  1. OXYCODONE;PARACETAMOL [Concomitant]
     Active Substance: ACETAMINOPHEN\OXYCODONE HYDROCHLORIDE
  2. STIVARGA [Suspect]
     Active Substance: REGORAFENIB
     Indication: ILLNESS
     Dosage: DAILY DOSE 80 MG FOR 21 OF 28 DAYS
     Route: 048
     Dates: start: 2020, end: 2020
  3. STIVARGA [Suspect]
     Active Substance: REGORAFENIB
     Indication: ILLNESS
     Dosage: DAILY DOSE 120 MG FOR 21 OF 28 DAYS
     Route: 048
     Dates: start: 202010, end: 2020
  4. STIVARGA [Suspect]
     Active Substance: REGORAFENIB
     Indication: ILLNESS
     Dosage: DAILY DOSE 40 MG
     Route: 048
     Dates: start: 2020

REACTIONS (3)
  - Musculoskeletal disorder [Recovering/Resolving]
  - Off label use [None]
  - Hypoaesthesia [Unknown]
